FAERS Safety Report 13188693 (Version 1)
Quarter: 2017Q1

REPORT INFORMATION
  Report Type: Report from Study
  Country: KR (occurrence: KR)
  Receive Date: 20170206
  Receipt Date: 20170206
  Transmission Date: 20170428
  Serious: Yes (Death, Hospitalization)
  Sender: FDA-Public Use
  Company Number: KR-ROCHE-1876033

PATIENT
  Age: 62 Year
  Sex: Male
  Weight: 42.3 kg

DRUGS (7)
  1. BENDAMUSTINE [Suspect]
     Active Substance: BENDAMUSTINE
     Dosage: CYCLE 4 DAY 1,2
     Route: 042
     Dates: start: 20160907, end: 20160908
  2. PEGFILGRASTIM [Suspect]
     Active Substance: PEGFILGRASTIM
     Dosage: CYCLE 4 DAY 3
     Route: 058
     Dates: start: 20160909, end: 20160909
  3. RAPAMUNE [Suspect]
     Active Substance: SIROLIMUS
     Indication: PRODUCT USED FOR UNKNOWN INDICATION
     Route: 048
     Dates: start: 1995
  4. BENDAMUSTINE [Suspect]
     Active Substance: BENDAMUSTINE
     Indication: DIFFUSE LARGE B-CELL LYMPHOMA
     Dosage: CYCLE 4 DAY 1,2
     Route: 042
     Dates: start: 20161007, end: 20161008
  5. RITUXIMAB [Suspect]
     Active Substance: RITUXIMAB
     Dosage: CYCLE 4 DAY 1
     Route: 058
     Dates: start: 20160907, end: 20160907
  6. PEGFILGRASTIM [Suspect]
     Active Substance: PEGFILGRASTIM
     Indication: DIFFUSE LARGE B-CELL LYMPHOMA
     Dosage: CYCLE 4 DAY 3
     Route: 058
     Dates: start: 20161009, end: 20161009
  7. RITUXIMAB [Suspect]
     Active Substance: RITUXIMAB
     Indication: DIFFUSE LARGE B-CELL LYMPHOMA
     Dosage: CYCLE 4 DAY 1
     Route: 058
     Dates: start: 20161007, end: 20161007

REACTIONS (3)
  - Platelet count decreased [Fatal]
  - Anaemia [Recovered/Resolved]
  - Pneumonia [Fatal]

NARRATIVE: CASE EVENT DATE: 20161003
